FAERS Safety Report 9026381 (Version 3)
Quarter: 2014Q3

REPORT INFORMATION
  Report Type: Report from Study
  Country: BR (occurrence: BR)
  Receive Date: 20130123
  Receipt Date: 20140916
  Transmission Date: 20150326
  Serious: Yes (Other)
  Sender: FDA-Public Use
  Company Number: PHHY2013BR005061

PATIENT
  Sex: Female
  Weight: 52 kg

DRUGS (9)
  1. LUDIOMIL [Suspect]
     Active Substance: MAPROTILINE HYDROCHLORIDE
     Indication: DEPRESSION
     Dosage: UNK
  2. LEXOTAN [Concomitant]
     Active Substance: BROMAZEPAM
     Indication: SLEEP DISORDER
     Dosage: 1 DF, UNK
  3. LYRICA [Concomitant]
     Active Substance: PREGABALIN
     Indication: SENSORY DISTURBANCE
     Dosage: 1 DF (1 TABLET), Q12H
  4. EXELON PATCH [Suspect]
     Active Substance: RIVASTIGMINE
     Indication: DEMENTIA
     Dosage: 4.6 MG (PATCH 5CM2), DAILY
     Route: 062
  5. LEXOTAN [Concomitant]
     Active Substance: BROMAZEPAM
     Indication: ANXIETY
  6. HORMONES NOS [Concomitant]
     Active Substance: UNSPECIFIED INGREDIENT
     Indication: HORMONE REPLACEMENT THERAPY
  7. TEGRETOL [Suspect]
     Active Substance: CARBAMAZEPINE
     Indication: TRIGEMINAL NEURALGIA
     Dosage: 400 MG, Q6H
     Route: 048
  8. DRUG THERAPY NOS [Suspect]
     Active Substance: UNSPECIFIED INGREDIENT
     Indication: DEPRESSION
  9. NEURONTIN [Concomitant]
     Active Substance: GABAPENTIN
     Indication: SENSORY DISTURBANCE

REACTIONS (27)
  - Fluid intake reduced [Unknown]
  - Lacrimation increased [Unknown]
  - Eye disorder [Recovering/Resolving]
  - Anxiety [Recovered/Resolved]
  - Hallucination, visual [Recovered/Resolved]
  - Feeling of despair [Unknown]
  - Ocular hyperaemia [Not Recovered/Not Resolved]
  - Drooling [Not Recovered/Not Resolved]
  - Dyspnoea [Recovering/Resolving]
  - Pain [Recovered/Resolved]
  - Hunger [Unknown]
  - Femur fracture [Recovering/Resolving]
  - Skin discolouration [Unknown]
  - Hypoaesthesia [Unknown]
  - Rhinitis [Unknown]
  - Skull fracture [Recovering/Resolving]
  - Dizziness [Recovering/Resolving]
  - Paralysis [Unknown]
  - Sensory disturbance [Not Recovered/Not Resolved]
  - Hemiplegia [Recovering/Resolving]
  - Ophthalmoplegia [Unknown]
  - Neuropathy peripheral [Recovering/Resolving]
  - Paraesthesia oral [Unknown]
  - Limb deformity [Recovered/Resolved]
  - Fall [Recovered/Resolved]
  - Hypokinesia [Recovering/Resolving]
  - Headache [Unknown]

NARRATIVE: CASE EVENT DATE: 2012
